FAERS Safety Report 23558656 (Version 1)
Quarter: 2024Q1

REPORT INFORMATION
  Report Type: Report from Study
  Country: AR (occurrence: AR)
  Receive Date: 20240223
  Receipt Date: 20240223
  Transmission Date: 20240410
  Serious: Yes (Hospitalization)
  Sender: FDA-Public Use
  Company Number: AR-ABBVIE-5650377

PATIENT
  Sex: Male

DRUGS (1)
  1. RINVOQ [Suspect]
     Active Substance: UPADACITINIB
     Indication: Dermatitis atopic
     Dosage: FORM STRENGTH-15 MILLIGRAM
     Route: 048
     Dates: start: 20221128, end: 20240103

REACTIONS (6)
  - Ophthalmic herpes zoster [Not Recovered/Not Resolved]
  - Cellulitis [Unknown]
  - Herpes zoster [Not Recovered/Not Resolved]
  - Vision blurred [Not Recovered/Not Resolved]
  - Immunosuppression [Not Recovered/Not Resolved]
  - Herpes ophthalmic [Not Recovered/Not Resolved]
